FAERS Safety Report 14205033 (Version 1)
Quarter: 2017Q4

REPORT INFORMATION
  Report Type: Spontaneous
  Country: US (occurrence: US)
  Receive Date: 20171119
  Receipt Date: 20171119
  Transmission Date: 20180321
  Serious: Yes (Life-Threatening, Hospitalization, Disabling)
  Sender: FDA-Public Use
  Company Number: None

PATIENT
  Age: 32 Year
  Sex: Female
  Weight: 58.95 kg

DRUGS (3)
  1. PROBIOTICS + VITAMINS, [Concomitant]
  2. CYMBALTA [Concomitant]
     Active Substance: DULOXETINE HYDROCHLORIDE
  3. SULFAMETHOXAZOLE-TMP GENERIC FOR BACTRIM, SEPTRA [Suspect]
     Active Substance: SULFAMETHOXAZOLE\TRIMETHOPRIM
     Indication: SINUSITIS
     Dosage: ?          OTHER STRENGTH:DS;QUANTITY:1 TABLET(S);?
     Route: 048
     Dates: start: 20171010, end: 20171016

REACTIONS (6)
  - Vaginal haemorrhage [None]
  - Immune thrombocytopenic purpura [None]
  - Influenza like illness [None]
  - Pain [None]
  - Blood pressure fluctuation [None]
  - Epistaxis [None]

NARRATIVE: CASE EVENT DATE: 20171017
